FAERS Safety Report 6713879-5 (Version None)
Quarter: 2010Q2

REPORT INFORMATION
  Report Type: 
  Country: None (occurrence: None)
  Receive Date: 20100506
  Receipt Date: 20100426
  Transmission Date: 20101027
  Serious: Yes (Other)
  Sender: FDA-Public Use
  Company Number: US-PFIZER INC-2010053251

PATIENT
  Sex: Male
  Weight: 65 kg

DRUGS (3)
  1. LIPITOR [Suspect]
     Indication: CARDIAC VALVE DISEASE
     Dosage: 40 MG, DAILY
     Route: 048
     Dates: start: 19960101
  2. ZITHROMAX [Suspect]
     Indication: UPPER RESPIRATORY TRACT INFECTION
     Dosage: 250 MG, 2X/DAY
     Route: 048
     Dates: start: 20100318, end: 20100318
  3. ZITHROMAX [Suspect]
     Dosage: 250 MG, 1X/DAY
     Route: 048
     Dates: start: 20100319, end: 20100322

REACTIONS (4)
  - COAGULATION TIME PROLONGED [None]
  - ILL-DEFINED DISORDER [None]
  - PROSTATIC SPECIFIC ANTIGEN INCREASED [None]
  - UPPER RESPIRATORY TRACT INFECTION [None]
